FAERS Safety Report 5224399-1 (Version None)
Quarter: 2007Q1

REPORT INFORMATION
  Report Type: 
  Country: None (occurrence: None)
  Receive Date: 20070130
  Receipt Date: 20070118
  Transmission Date: 20070707
  Serious: Yes (Congenital Anomaly, Other)
  Sender: FDA-Public Use
  Company Number: GB-PFIZER INC-2006061189

PATIENT
  Sex: Female
  Weight: 3.146 kg

DRUGS (4)
  1. DOXYCYCLINE [Suspect]
     Indication: MALARIA
     Route: 064
  2. SALBUTAMOL [Concomitant]
     Route: 064
     Dates: start: 20060308, end: 20060315
  3. ERYTHROMYCIN [Concomitant]
     Dates: start: 20060308, end: 20060315
  4. SERETIDE [Concomitant]
     Indication: ASTHMA
     Route: 064
     Dates: start: 20060308

REACTIONS (2)
  - ANKYLOGLOSSIA CONGENITAL [None]
  - DRUG EXPOSURE DURING PREGNANCY [None]
